FAERS Safety Report 9616074 (Version 2)
Quarter: 2013Q4

REPORT INFORMATION
  Report Type: Spontaneous
  Country: US (occurrence: US)
  Receive Date: 20131011
  Receipt Date: 20131105
  Transmission Date: 20140711
  Serious: Yes (Other)
  Sender: FDA-Public Use
  Company Number: US-PFIZER INC-2013288888

PATIENT
  Age: 19 Year
  Sex: Male
  Weight: 65.76 kg

DRUGS (4)
  1. GEODON [Suspect]
     Indication: ABNORMAL BEHAVIOUR
     Dosage: 40 MG, 2X/DAY
     Route: 048
     Dates: start: 20130830, end: 20130917
  2. GEODON [Suspect]
     Indication: AFFECTIVE DISORDER
     Dosage: 40 MG, 2X/DAY
     Route: 048
     Dates: start: 20131005, end: 2013
  3. PROZAC [Concomitant]
     Dosage: 20 G, UNK
     Dates: start: 20130522, end: 20131028
  4. ZANTAC [Concomitant]
     Indication: GASTROOESOPHAGEAL REFLUX DISEASE
     Dosage: UNK
     Dates: start: 20130918, end: 20131028

REACTIONS (3)
  - Dyskinesia [Recovered/Resolved]
  - Muscle contractions involuntary [Recovered/Resolved]
  - Pain [Recovered/Resolved]
